FAERS Safety Report 4847917-1 (Version None)
Quarter: 2005Q4

REPORT INFORMATION
  Report Type: 
  Country: None (occurrence: None)
  Receive Date: 20051206
  Receipt Date: 20051206
  Transmission Date: 20060501
  Serious: Yes (Hospitalization)
  Sender: FDA-Public Use
  Company Number: None

PATIENT
  Age: 61 Year
  Sex: Female
  Weight: 98 kg

DRUGS (12)
  1. AZACITIDINE [Suspect]
     Indication: ACUTE MYELOID LEUKAEMIA
     Dosage: 75MG/M2 ON DAYS 1-7
     Dates: start: 20050613, end: 20050711
  2. AZACITIDINE [Suspect]
     Indication: MYELODYSPLASTIC SYNDROME
     Dosage: 75MG/M2 ON DAYS 1-7
     Dates: start: 20050613, end: 20050711
  3. GEMTUZUMAB OZOGAMICIN [Suspect]
     Indication: ACUTE MYELOID LEUKAEMIA
     Dosage: 3MG/M2 ON DAY 8
     Dates: start: 20050620
  4. GEMTUZUMAB OZOGAMICIN [Suspect]
     Indication: MYELODYSPLASTIC SYNDROME
     Dosage: 3MG/M2 ON DAY 8
     Dates: start: 20050620
  5. BENICAR [Concomitant]
  6. NORVASC [Concomitant]
  7. ZYRTEC [Concomitant]
  8. SINGULAIR [Concomitant]
  9. ALBUTEROL AND MAXAIR NEBULIZER [Concomitant]
  10. PREVACID [Concomitant]
  11. DYAZIDE [Concomitant]
  12. PREMARIN [Concomitant]

REACTIONS (11)
  - BRAIN NATRIURETIC PEPTIDE INCREASED [None]
  - ENTEROCOCCAL INFECTION [None]
  - GENERAL PHYSICAL HEALTH DETERIORATION [None]
  - HAEMATOCRIT DECREASED [None]
  - HAEMOGLOBIN DECREASED [None]
  - HAEMOPHILUS INFECTION [None]
  - HAEMOPTYSIS [None]
  - HYPOXIA [None]
  - PNEUMONIA [None]
  - WHITE BLOOD CELL COUNT DECREASED [None]
  - WHITE BLOOD CELL COUNT INCREASED [None]
